FAERS Safety Report 14210281 (Version 2)
Quarter: 2017Q4

REPORT INFORMATION
  Report Type: Report from Study
  Country: US (occurrence: US)
  Receive Date: 20171121
  Receipt Date: 20171228
  Transmission Date: 20180321
  Serious: Yes (Hospitalization, Other)
  Sender: FDA-Public Use
  Company Number: US-JNJFOC-20170708972

PATIENT
  Age: 76 Year
  Sex: Female
  Weight: 53 kg

DRUGS (15)
  1. ALLOPURINOL. [Concomitant]
     Active Substance: ALLOPURINOL
  2. DETROL [Concomitant]
     Active Substance: TOLTERODINE TARTRATE
  3. SYNTHROID [Concomitant]
     Active Substance: LEVOTHYROXINE SODIUM
  4. MULTIVITAMINS [Concomitant]
     Active Substance: VITAMINS
  5. BONIVA [Concomitant]
     Active Substance: IBANDRONATE SODIUM
  6. TOPROL XL [Concomitant]
     Active Substance: METOPROLOL SUCCINATE
  7. FIBERCON [Concomitant]
     Active Substance: CALCIUM POLYCARBOPHIL
  8. CRANBERRY. [Concomitant]
     Active Substance: CRANBERRY
  9. IMBRUVICA [Suspect]
     Active Substance: IBRUTINIB
     Indication: WALDENSTROM^S MACROGLOBULINAEMIA
     Route: 048
     Dates: start: 20170518, end: 201706
  10. ASPIRIN. [Concomitant]
     Active Substance: ASPIRIN
  11. ZANTAC [Concomitant]
     Active Substance: RANITIDINE HYDROCHLORIDE
  12. METOPROLOL. [Concomitant]
     Active Substance: METOPROLOL
     Indication: HYPERTENSION
  13. IMBRUVICA [Suspect]
     Active Substance: IBRUTINIB
     Indication: WALDENSTROM^S MACROGLOBULINAEMIA
     Route: 048
     Dates: start: 20170517, end: 20170611
  14. CALCIUM [Concomitant]
     Active Substance: CALCIUM
  15. PLANTAGO OVATA [Concomitant]
     Active Substance: HERBALS\PLANTAGO OVATA LEAF

REACTIONS (11)
  - Urinary tract infection [Recovered/Resolved]
  - Hip fracture [Unknown]
  - Mitral valve incompetence [Unknown]
  - Enterobacter test positive [Recovered/Resolved]
  - Asthenia [Not Recovered/Not Resolved]
  - Atrial tachycardia [Unknown]
  - Clostridium difficile colitis [Unknown]
  - Sepsis [Recovered/Resolved]
  - Atrial fibrillation [Recovering/Resolving]
  - Atrioventricular block second degree [Unknown]
  - Neutropenia [Unknown]

NARRATIVE: CASE EVENT DATE: 20170611
